FAERS Safety Report 12381997 (Version 2)
Quarter: 2016Q2

REPORT INFORMATION
  Report Type: Spontaneous
  Country: TR (occurrence: TR)
  Receive Date: 20160518
  Receipt Date: 20160628
  Transmission Date: 20160815
  Serious: Yes (Other)
  Sender: FDA-Public Use
  Company Number: TR-ACTAVIS-2016-10116

PATIENT
  Age: 52 Year
  Sex: Female

DRUGS (1)
  1. DICLOFENAC (UNKNOWN) [Suspect]
     Active Substance: DICLOFENAC SODIUM
     Indication: PRODUCT USED FOR UNKNOWN INDICATION
     Dosage: UNKNOWN
     Route: 065

REACTIONS (1)
  - Autoimmune hepatitis [Recovered/Resolved]
